FAERS Safety Report 5724814-0 (Version None)
Quarter: 2008Q2

REPORT INFORMATION
  Report Type: 
  Country: None (occurrence: None)
  Receive Date: 20080423
  Receipt Date: 20080409
  Transmission Date: 20081010
  Serious: Yes (Death)
  Sender: FDA-Public Use
  Company Number: THYM-1000665

PATIENT
  Age: 13 Year
  Sex: Female

DRUGS (16)
  1. THYMOGLOBULINE (ANTI-THYMOCYTE GLOBULIN (RABBIT)) POWDER FOR SOLUTION [Suspect]
     Indication: BONE MARROW TRANSPLANT
     Dosage: 125 MG, QD, INTRAVENOUS
     Route: 042
     Dates: start: 20080228, end: 20080302
  2. FLUDARA [Suspect]
     Indication: DRUG USE FOR UNKNOWN INDICATION
     Dosage: 50 MG, QD, INTRAVENOUS
     Route: 042
     Dates: start: 20080226, end: 20080301
  3. TREOSULFAN (TREOSULFAN) [Suspect]
     Indication: DRUG USE FOR UNKNOWN INDICATION
     Dosage: 21 G, INTRAVENOUS
     Route: 042
     Dates: start: 20080227, end: 20080229
  4. CARBAMAZEPINA (CARBAMAZEPINE) [Concomitant]
  5. TRIMETHOPRIM + SULFAMETOXAZOL (SULFAMETHOXAZOLE, TRIMETHOPRIM) [Concomitant]
  6. DEFIBROTIDE (DEFIBROTIDE) [Concomitant]
  7. MORPHINE [Concomitant]
  8. VORICONAZOLE (VORICONAZOLE) [Concomitant]
  9. CYCLOSPORINE [Concomitant]
  10. DOBUTAMINE (DOBUTAMINE) [Concomitant]
  11. MEROPENEM (MEROPENEM) [Concomitant]
  12. ACYCLOVIR [Concomitant]
  13. VANCOMICINA (VANCOMYCIN) [Concomitant]
  14. FUROSEMIDE [Concomitant]
  15. INSULIN (INSULIN) [Concomitant]
  16. CAPTOPRIL [Concomitant]

REACTIONS (1)
  - CARDIAC FAILURE [None]
